FAERS Safety Report 10530740 (Version 1)
Quarter: 2014Q4

REPORT INFORMATION
  Report Type: Spontaneous
  Country: US (occurrence: None)
  Receive Date: 20141020
  Receipt Date: 20141020
  Transmission Date: 20150528
  Serious: Yes (Hospitalization)
  Sender: FDA-Public Use
  Company Number: None

PATIENT
  Age: 66 Year
  Sex: Male
  Weight: 72.58 kg

DRUGS (1)
  1. LIALDA [Suspect]
     Active Substance: MESALAMINE
     Indication: COLITIS ULCERATIVE
     Dosage: 4 PILLS  ONCE DAILY  TAKEN BY MOUTH
     Route: 048
     Dates: start: 20140901, end: 20141005

REACTIONS (5)
  - Diarrhoea [None]
  - Weight decreased [None]
  - Asthenia [None]
  - Drug effect decreased [None]
  - Colitis ulcerative [None]

NARRATIVE: CASE EVENT DATE: 20141011
